FAERS Safety Report 10619932 (Version 1)
Quarter: 2014Q4

REPORT INFORMATION
  Report Type: Spontaneous
  Country: US (occurrence: None)
  Receive Date: 20141201
  Receipt Date: 20141201
  Transmission Date: 20150529
  Serious: No
  Sender: FDA-Public Use
  Company Number: None

PATIENT
  Age: 49 Year
  Sex: Female
  Weight: 86.18 kg

DRUGS (1)
  1. NUVIGIL [Suspect]
     Active Substance: ARMODAFINIL
     Indication: HYPERSOMNIA
     Dosage: 2 PILLS ONCE DAILY TAKEN BY MOUTH
     Route: 048
     Dates: start: 20141027, end: 20141130

REACTIONS (1)
  - Alopecia [None]

NARRATIVE: CASE EVENT DATE: 20141110
